FAERS Safety Report 13932012 (Version 1)
Quarter: 2017Q3

REPORT INFORMATION
  Report Type: Spontaneous
  Country: FI (occurrence: FI)
  Receive Date: 20170904
  Receipt Date: 20170904
  Transmission Date: 20171127
  Serious: Yes (Other)
  Sender: FDA-Public Use
  Company Number: FI-ABBVIE-17K-055-2080405-00

PATIENT
  Age: 40 Year
  Sex: Female

DRUGS (2)
  1. ENTYVIO [Suspect]
     Active Substance: VEDOLIZUMAB
     Indication: PRODUCT USED FOR UNKNOWN INDICATION
     Route: 065
  2. HUMIRA [Suspect]
     Active Substance: ADALIMUMAB
     Indication: PRODUCT USED FOR UNKNOWN INDICATION
     Route: 058
     Dates: start: 2014, end: 201610

REACTIONS (12)
  - Endometriosis [Unknown]
  - Hypothyroidism [Unknown]
  - Lupus-like syndrome [Recovering/Resolving]
  - Bursitis [Unknown]
  - Long-chain acyl-coenzyme A dehydrogenase deficiency [Unknown]
  - Joint swelling [Unknown]
  - Muscular weakness [Unknown]
  - Back pain [Unknown]
  - Solar dermatitis [Unknown]
  - Arthralgia [Recovering/Resolving]
  - Butterfly rash [Not Recovered/Not Resolved]
  - Peripheral coldness [Unknown]

NARRATIVE: CASE EVENT DATE: 2016
